FAERS Safety Report 12620960 (Version 4)
Quarter: 2017Q1

REPORT INFORMATION
  Report Type: Spontaneous
  Country: JP (occurrence: JP)
  Receive Date: 20160804
  Receipt Date: 20170310
  Transmission Date: 20170428
  Serious: Yes (Hospitalization, Other)
  Sender: FDA-Public Use
  Company Number: PHJP2016JP021883

PATIENT
  Age: 18 Year
  Sex: Female
  Weight: 45.8 kg

DRUGS (4)
  1. COSENTYX [Suspect]
     Active Substance: SECUKINUMAB
     Indication: PUSTULAR PSORIASIS
     Dosage: 300 MG, QW
     Route: 058
     Dates: start: 20160518, end: 20160615
  2. NEORAL [Concomitant]
     Active Substance: CYCLOSPORINE
     Dosage: 100 MG, QW
     Route: 048
     Dates: end: 20160612
  3. NEORAL [Concomitant]
     Active Substance: CYCLOSPORINE
     Indication: PUSTULAR PSORIASIS
     Dosage: 15 MG TO 150 MG
     Route: 048
     Dates: start: 201207
  4. NEORAL [Concomitant]
     Active Substance: CYCLOSPORINE
     Dosage: 100 MG, QD
     Route: 048
     Dates: start: 20160707

REACTIONS (9)
  - Pyrexia [Unknown]
  - Diarrhoea [Recovered/Resolved]
  - Rash [Recovering/Resolving]
  - Inflammation [Recovered/Resolved]
  - Malaise [Unknown]
  - C-reactive protein increased [Recovered/Resolved]
  - Crohn^s disease [Recovering/Resolving]
  - Abdominal pain [Recovered/Resolved]
  - Rash pruritic [Recovering/Resolving]

NARRATIVE: CASE EVENT DATE: 20160621
